FAERS Safety Report 8047695-1 (Version None)
Quarter: 2012Q1

REPORT INFORMATION
  Report Type: 
  Country: None (occurrence: None)
  Receive Date: 20120116
  Receipt Date: 20120106
  Transmission Date: 20120608
  Serious: Yes (Hospitalization)
  Sender: FDA-Public Use
  Company Number: DE-ABBOTT-11P-062-0724482-00

PATIENT
  Sex: Male
  Weight: 72 kg

DRUGS (2)
  1. HUMIRA [Suspect]
     Indication: PSORIASIS
     Route: 058
     Dates: start: 20110111
  2. HUMIRA [Suspect]

REACTIONS (3)
  - CEREBRAL THROMBOSIS [None]
  - HYPERTENSION [None]
  - HAEMORRHAGIC STROKE [None]
